FAERS Safety Report 16350683 (Version 1)
Quarter: 2019Q2

REPORT INFORMATION
  Report Type: Spontaneous
  Country: US (occurrence: US)
  Receive Date: 20190524
  Receipt Date: 20190524
  Transmission Date: 20190711
  Serious: No
  Sender: FDA-Public Use
  Company Number: US-ASTRAZENECA-2019SE74150

PATIENT
  Age: 51 Year
  Sex: Female
  Weight: 59 kg

DRUGS (2)
  1. SEROQUEL [Suspect]
     Active Substance: QUETIAPINE FUMARATE
     Dosage: 2 TABLETS AT NIGHT ON WEEKLY BASISI
     Route: 048
  2. EMERGEN-C [Suspect]
     Active Substance: VITAMINS
     Dosage: 1000.0MG UNKNOWN
     Route: 065
     Dates: start: 20190510

REACTIONS (2)
  - Nausea [Recovering/Resolving]
  - Malaise [Unknown]

NARRATIVE: CASE EVENT DATE: 20190510
